FAERS Safety Report 4303076-5 (Version None)
Quarter: 2004Q1

REPORT INFORMATION
  Report Type: 
  Country: None (occurrence: None)
  Receive Date: 20040126
  Receipt Date: 20030929
  Transmission Date: 20041129
  Serious: No
  Sender: FDA-Public Use
  Company Number: USA030948495

PATIENT
  Age: 6 Year
  Sex: Female
  Weight: 24 kg

DRUGS (3)
  1. STRATTERA [Suspect]
     Indication: ATTENTION DEFICIT/HYPERACTIVITY DISORDER
     Dosage: 40 MG/ IN THE MORNING
     Dates: start: 20030401
  2. SEROQUEL [Concomitant]
  3. ZOLOFT [Concomitant]

REACTIONS (4)
  - INITIAL INSOMNIA [None]
  - PRESCRIBED OVERDOSE [None]
  - VOMITING [None]
  - WEIGHT DECREASED [None]
